FAERS Safety Report 25778787 (Version 2)
Quarter: 2025Q4

REPORT INFORMATION
  Report Type: Spontaneous
  Country: US (occurrence: US)
  Receive Date: 20250909
  Receipt Date: 20251001
  Transmission Date: 20260117
  Serious: Yes (Other)
  Sender: ALEXION PHARMACEUTICALS
  Company Number: US-AstraZeneca-CH-00942770A

PATIENT
  Sex: Female

DRUGS (1)
  1. ASFOTASE ALFA [Suspect]
     Active Substance: ASFOTASE ALFA
     Indication: Hypophosphatasia
     Dosage: UNK

REACTIONS (5)
  - Injection site pain [Unknown]
  - Dizziness [Unknown]
  - Nausea [Unknown]
  - Myalgia [Unknown]
  - Bell^s palsy [Unknown]
